FAERS Safety Report 6760540-7 (Version None)
Quarter: 2010Q2

REPORT INFORMATION
  Report Type: 
  Country: None (occurrence: None)
  Receive Date: 20100607
  Receipt Date: 20100607
  Transmission Date: 20101027
  Serious: Yes (Other)
  Sender: FDA-Public Use
  Company Number: None

PATIENT
  Age: 57 Year
  Sex: Female
  Weight: 80.2867 kg

DRUGS (4)
  1. CELEBREX [Suspect]
     Indication: OSTEOARTHRITIS
     Dosage: ONCE QD PO
     Route: 048
     Dates: start: 19990601
  2. CELEBREX [Suspect]
     Indication: RHEUMATOID ARTHRITIS
     Dosage: ONCE QD PO
     Route: 048
     Dates: start: 19990601
  3. MELOXICAM [Suspect]
     Indication: OSTEOARTHRITIS
     Dosage: ONCE QD PO
     Route: 048
     Dates: start: 20060901
  4. MELOXICAM [Suspect]
     Indication: RHEUMATOID ARTHRITIS
     Dosage: ONCE QD PO
     Route: 048
     Dates: start: 20060901

REACTIONS (3)
  - GENERALISED OEDEMA [None]
  - RASH [None]
  - URTICARIA [None]
